FAERS Safety Report 24280495 (Version 1)
Quarter: 2024Q3

REPORT INFORMATION
  Report Type: Spontaneous
  Country: TW (occurrence: TW)
  Receive Date: 20240904
  Receipt Date: 20240904
  Transmission Date: 20241017
  Serious: Yes (Hospitalization)
  Sender: RANBAXY
  Company Number: TW-SUN PHARMACEUTICAL INDUSTRIES LTD-2024R1-465297

PATIENT
  Age: 56 Year
  Sex: Female
  Weight: 57 kg

DRUGS (4)
  1. ACETAMINOPHEN [Suspect]
     Active Substance: ACETAMINOPHEN
     Indication: Generalised pustular psoriasis
     Dosage: UNK
     Route: 065
  2. CLOBETASOL [Suspect]
     Active Substance: CLOBETASOL
     Indication: Generalised pustular psoriasis
     Dosage: UNK
     Route: 061
     Dates: start: 2012, end: 2016
  3. ACITRETIN [Suspect]
     Active Substance: ACITRETIN
     Indication: Generalised pustular psoriasis
     Dosage: UNK
     Route: 048
     Dates: start: 2012, end: 2016
  4. SECUKINUMAB [Suspect]
     Active Substance: SECUKINUMAB
     Indication: Generalised pustular psoriasis
     Dosage: 150 MILLIGRAM, WEEKLY
     Route: 065

REACTIONS (1)
  - Disease recurrence [Unknown]
